FAERS Safety Report 13883354 (Version 5)
Quarter: 2017Q4

REPORT INFORMATION
  Report Type: Spontaneous
  Country: JP (occurrence: JP)
  Receive Date: 20170818
  Receipt Date: 20171201
  Transmission Date: 20180320
  Serious: Yes (Hospitalization, Other)
  Sender: FDA-Public Use
  Company Number: JP-GILEAD-2017-0280608

PATIENT
  Age: 66 Year
  Sex: Male

DRUGS (9)
  1. AMLODIPINE [Concomitant]
     Active Substance: AMLODIPINE BESYLATE
     Dosage: UNK
  2. AMLODIPINE [Concomitant]
     Active Substance: AMLODIPINE BESYLATE
     Dosage: UNK
  3. BARACLUDE [Concomitant]
     Active Substance: ENTECAVIR
     Indication: HEPATITIS B
  4. ZEFIX [Suspect]
     Active Substance: LAMIVUDINE
     Indication: HEPATITIS B
     Dosage: UNK
     Route: 065
     Dates: end: 200611
  5. AMLODIPINE [Concomitant]
     Active Substance: AMLODIPINE BESYLATE
     Dosage: UNK
  6. ZEFIX [Suspect]
     Active Substance: LAMIVUDINE
     Dosage: UNK
     Route: 065
     Dates: start: 2009
  7. HEPSERA [Suspect]
     Active Substance: ADEFOVIR DIPIVOXIL
     Indication: HEPATITIS B
     Dosage: UNK
     Route: 048
     Dates: start: 2005, end: 200611
  8. TENOFOVIR DISOPROXIL FUMARATE. [Suspect]
     Active Substance: TENOFOVIR DISOPROXIL FUMARATE
     Indication: HEPATITIS B
     Dosage: 300 MG, QD
     Route: 048
     Dates: start: 20150601, end: 20170221
  9. HEPSERA [Suspect]
     Active Substance: ADEFOVIR DIPIVOXIL
     Dosage: UNK
     Route: 048
     Dates: start: 2009

REACTIONS (15)
  - Chronic gastritis [Unknown]
  - Helicobacter gastritis [Unknown]
  - Renal glycosuria [Unknown]
  - Hypophosphataemia [Unknown]
  - Blood creatinine decreased [Unknown]
  - Femur fracture [Recovered/Resolved]
  - Osteomalacia [Recovered/Resolved]
  - Arthralgia [Unknown]
  - Osteoporosis [Unknown]
  - Blood phosphorus decreased [Recovered/Resolved]
  - Hyperphosphatasaemia [Unknown]
  - Pain in extremity [Recovered/Resolved]
  - Lower limb fracture [Recovered/Resolved]
  - Tubulointerstitial nephritis [Recovering/Resolving]
  - Renal impairment [Recovered/Resolved]

NARRATIVE: CASE EVENT DATE: 20150209
